FAERS Safety Report 18084213 (Version 1)
Quarter: 2020Q3

REPORT INFORMATION
  Report Type: Spontaneous
  Country: US (occurrence: US)
  Receive Date: 20200729
  Receipt Date: 20200729
  Transmission Date: 20201103
  Serious: No
  Sender: FDA-Public Use
  Company Number: US-BIOGEN-2015BI030765

PATIENT
  Age: 37 Year
  Sex: Female

DRUGS (2)
  1. TECFIDERA [Suspect]
     Active Substance: DIMETHYL FUMARATE
     Indication: MULTIPLE SCLEROSIS
     Route: 048
     Dates: start: 201306, end: 201306
  2. TECFIDERA [Suspect]
     Active Substance: DIMETHYL FUMARATE
     Route: 048
     Dates: start: 20130610

REACTIONS (6)
  - Inappropriate schedule of product administration [Unknown]
  - Memory impairment [Unknown]
  - Asthenia [Unknown]
  - Flushing [Recovered/Resolved]
  - Paraesthesia [Unknown]
  - Nausea [Unknown]

NARRATIVE: CASE EVENT DATE: 201306
